FAERS Safety Report 5259549-4 (Version None)
Quarter: 2007Q1

REPORT INFORMATION
  Report Type: 
  Country: None (occurrence: None)
  Receive Date: 20070306
  Receipt Date: 20070220
  Transmission Date: 20070707
  Serious: Yes (Death)
  Sender: FDA-Public Use
  Company Number: T200700241

PATIENT
  Age: 41 Year
  Sex: Female
  Weight: 84.8 kg

DRUGS (14)
  1. METHADONE HCL [Suspect]
     Indication: BACK PAIN
     Dosage: ORAL
     Route: 048
     Dates: start: 20040601, end: 20040601
  2. VICODIN [Concomitant]
  3. PHENERGAN /00033001/ (PROMETHAZINE) [Concomitant]
  4. EES (ERYTHROMYCIN ETHYLSUCCINATE) [Concomitant]
  5. MS CONTIN [Concomitant]
  6. DEMEROL [Concomitant]
  7. LEVSIN (HYOSCYAMINE SULFATE) [Concomitant]
  8. METHYLPREDNISOLONE [Concomitant]
  9. AZULFIDINE [Concomitant]
  10. OZERLSIDONE [Concomitant]
  11. DMAUOULON [Concomitant]
  12. HYDROCODONE/ACETAMINOPHEN (HYDROCODONE BITARTRATE, ACETAMINOPHEN) TABL [Concomitant]
  13. TEMAZEPAM [Concomitant]
  14. DIKIN [Concomitant]

REACTIONS (1)
  - MULTIPLE DRUG OVERDOSE [None]
